FAERS Safety Report 6243422-9 (Version None)
Quarter: 2009Q2

REPORT INFORMATION
  Report Type: 
  Country: None (occurrence: None)
  Receive Date: 20090618
  Receipt Date: 20090217
  Transmission Date: 20091009
  Serious: Yes (Other)
  Sender: FDA-Public Use
  Company Number: CIP09000397

PATIENT
  Sex: Female

DRUGS (2)
  1. ACTONEL [Suspect]
     Indication: OSTEOPENIA
     Dosage: 150 MG ONCE MONTHLY, ORAL
     Route: 048
  2. ACTONEL [Suspect]
     Indication: OSTEOPENIA
     Dosage: 35 MG, ORAL
     Route: 048

REACTIONS (2)
  - OSTEONECROSIS [None]
  - PAIN IN JAW [None]
